FAERS Safety Report 17315345 (Version 1)
Quarter: 2020Q1

REPORT INFORMATION
  Report Type: Spontaneous
  Country: US (occurrence: US)
  Receive Date: 20200124
  Receipt Date: 20200124
  Transmission Date: 20200409
  Serious: No
  Sender: FDA-Public Use
  Company Number: US-VERTEX PHARMACEUTICALS-2020-000993

PATIENT
  Age: 19 Year
  Sex: Female

DRUGS (21)
  1. CETIRIZINE [Concomitant]
     Active Substance: CETIRIZINE HYDROCHLORIDE
  2. FLEET ENEMA [Concomitant]
     Active Substance: SODIUM PHOSPHATE, DIBASIC\SODIUM PHOSPHATE, MONOBASIC
  3. NEXPLANON [Concomitant]
     Active Substance: ETONOGESTREL
  4. SODIUM CHLORIDE. [Concomitant]
     Active Substance: SODIUM CHLORIDE
  5. TRIAMCINOLONE [Concomitant]
     Active Substance: TRIAMCINOLONE
  6. FERROUS SULFATE. [Concomitant]
     Active Substance: FERROUS SULFATE
  7. AZITHROMYCIN ANHYDROUS. [Concomitant]
     Active Substance: AZITHROMYCIN ANHYDROUS
  8. TRIKAFTA [Suspect]
     Active Substance: ELEXACAFTOR\IVACAFTOR\TEZACAFTOR
     Indication: CYSTIC FIBROSIS
     Dosage: 2 TABLETS (100MG ELEXACAFTOR/ 50MG TEZACAFTOR/ 75MG IVACAFTOR)AM; 1 TABLET (150MG IVACAFTOR)PM
     Route: 048
     Dates: start: 202001
  9. PULMOZYME [Concomitant]
     Active Substance: DORNASE ALFA
  10. ABILIFY [Concomitant]
     Active Substance: ARIPIPRAZOLE
  11. PROVENTIL [Concomitant]
     Active Substance: ALBUTEROL
  12. BUSPIRONE [Concomitant]
     Active Substance: BUSPIRONE HYDROCHLORIDE
  13. CREON [Concomitant]
     Active Substance: PANCRELIPASE AMYLASE\PANCRELIPASE LIPASE\PANCRELIPASE PROTEASE
  14. PROPRANOLOL [Concomitant]
     Active Substance: PROPRANOLOL HYDROCHLORIDE
  15. BUPROPION. [Concomitant]
     Active Substance: BUPROPION
  16. VITAMIN D [COLECALCIFEROL] [Concomitant]
     Active Substance: CHOLECALCIFEROL
  17. FLUTICASONE. [Concomitant]
     Active Substance: FLUTICASONE
  18. TOBRAMYCIN. [Concomitant]
     Active Substance: TOBRAMYCIN
  19. DOCUSATE [Concomitant]
     Active Substance: DOCUSATE
  20. PEG [PREGABALIN] [Concomitant]
  21. SENNA [SENNA ALEXANDRINA] [Concomitant]
     Active Substance: SENNA LEAF

REACTIONS (2)
  - Productive cough [Recovered/Resolved]
  - Asthenia [Recovered/Resolved]

NARRATIVE: CASE EVENT DATE: 202001
